FAERS Safety Report 5079441-8 (Version None)
Quarter: 2006Q3

REPORT INFORMATION
  Report Type: 
  Country: None (occurrence: None)
  Receive Date: 20060814
  Receipt Date: 20040827
  Transmission Date: 20061208
  Serious: Yes (Hospitalization, Disabling)
  Sender: FDA-Public Use
  Company Number: PHFR2004GB03344

PATIENT
  Age: 33 Year
  Sex: Male
  Weight: 63.492 kg

DRUGS (5)
  1. NEORAL [Suspect]
     Indication: PSORIASIS
     Dosage: 225 MG, BID
     Route: 048
     Dates: start: 20040101, end: 20040801
  2. NEORAL [Suspect]
     Dosage: 125 MG, BID
     Route: 048
  3. NEORAL [Suspect]
     Dosage: 100 MG, QD
     Route: 048
     Dates: end: 20040811
  4. ACITRETIN [Suspect]
     Indication: PSORIASIS
     Dosage: 60 MG, QD
     Route: 048
     Dates: end: 20040820
  5. BENDROFLUAZIDE [Concomitant]

REACTIONS (14)
  - ASTHENIA [None]
  - BACK PAIN [None]
  - BEDRIDDEN [None]
  - CONDITION AGGRAVATED [None]
  - ELECTROMYOGRAM ABNORMAL [None]
  - EXTRASKELETAL OSSIFICATION [None]
  - HYPERTENSION [None]
  - MUSCULAR WEAKNESS [None]
  - MUSCULOSKELETAL PAIN [None]
  - MYOPATHY [None]
  - PAIN IN EXTREMITY [None]
  - PSORIASIS [None]
  - SPINAL OSTEOARTHRITIS [None]
  - SYNDESMOPHYTE [None]
